FAERS Safety Report 23111404 (Version 1)
Quarter: 2023Q4

REPORT INFORMATION
  Report Type: Spontaneous
  Country: US (occurrence: US)
  Receive Date: 20231026
  Receipt Date: 20231026
  Transmission Date: 20240109
  Serious: No
  Sender: FDA-Public Use
  Company Number: US-PFIZER INC-202300337244

PATIENT
  Age: 14 Year
  Sex: Male

DRUGS (1)
  1. TOFACITINIB CITRATE [Suspect]
     Active Substance: TOFACITINIB CITRATE
     Indication: Alopecia areata
     Dosage: 5 MG, 2X/DAY

REACTIONS (5)
  - Off label use [Recovered/Resolved]
  - Drug effective for unapproved indication [Recovered/Resolved]
  - Acne [Recovered/Resolved]
  - Condition aggravated [Recovered/Resolved]
  - Alopecia areata [Recovered/Resolved]
